FAERS Safety Report 8124059-3 (Version None)
Quarter: 2012Q1

REPORT INFORMATION
  Report Type: 
  Country: None (occurrence: None)
  Receive Date: 20120209
  Receipt Date: 20120203
  Transmission Date: 20120608
  Serious: Yes (Other)
  Sender: FDA-Public Use
  Company Number: US-PFIZER INC-2012030614

PATIENT
  Sex: Female

DRUGS (9)
  1. ATIVAN [Concomitant]
     Dosage: UNK
  2. NUVIGIL [Concomitant]
     Dosage: UNK
  3. SEROQUEL XR [Concomitant]
     Dosage: UNK
  4. LYRICA [Suspect]
     Dosage: 150 MG, 3X/DAY (1 PO TID)
     Route: 048
  5. RISPERDAL [Concomitant]
     Dosage: UNK
  6. DOXEPIN [Concomitant]
     Dosage: UNK
  7. ROBAXIN [Concomitant]
     Dosage: UNK
  8. CELEBREX [Concomitant]
     Dosage: UNK
  9. NEXIUM [Concomitant]
     Dosage: UNK

REACTIONS (1)
  - PAIN [None]
